FAERS Safety Report 18038454 (Version 5)
Quarter: 2021Q2

REPORT INFORMATION
  Report Type: Spontaneous
  Country: US (occurrence: US)
  Receive Date: 20200717
  Receipt Date: 20210624
  Transmission Date: 20210717
  Serious: Yes (Other)
  Sender: FDA-Public Use
  Company Number: US-GILEAD-2020-0483619

PATIENT
  Age: 57 Year
  Sex: Male
  Weight: 108.84 kg

DRUGS (48)
  1. SENSIPAR [Concomitant]
     Active Substance: CINACALCET HYDROCHLORIDE
  2. ASPIRIN (E.C.) [Concomitant]
     Active Substance: ASPIRIN
  3. CORTISONE [Concomitant]
     Active Substance: CORTISONE
  4. HYDRALAZINE [Concomitant]
     Active Substance: HYDRALAZINE HYDROCHLORIDE
  5. FLECAINIDE [Concomitant]
     Active Substance: FLECAINIDE
  6. ALBUTEROL [SALBUTAMOL] [Concomitant]
     Active Substance: ALBUTEROL
  7. CIALIS [Concomitant]
     Active Substance: TADALAFIL
  8. MONTELUKAST [Concomitant]
     Active Substance: MONTELUKAST SODIUM
  9. HEPARIN [Concomitant]
     Active Substance: HEPARIN SODIUM
  10. PANTOPRAZOLE [Concomitant]
     Active Substance: PANTOPRAZOLE
  11. COMBIVIR [Concomitant]
     Active Substance: LAMIVUDINE\ZIDOVUDINE
  12. INTELENCE [Concomitant]
     Active Substance: ETRAVIRINE
  13. METOPROLOL. [Concomitant]
     Active Substance: METOPROLOL
  14. AMLODIPINE BESYLATE. [Concomitant]
     Active Substance: AMLODIPINE BESYLATE
  15. VALACYCLOVIR HCL [Concomitant]
     Active Substance: VALACYCLOVIR HYDROCHLORIDE
  16. ACETAMINOPHEN. [Concomitant]
     Active Substance: ACETAMINOPHEN
  17. CRIXIVAN [Concomitant]
     Active Substance: INDINAVIR SULFATE
  18. TRIZIVIR [Concomitant]
     Active Substance: ABACAVIR SULFATE\LAMIVUDINE\ZIDOVUDINE
  19. VIAGRA [Concomitant]
     Active Substance: SILDENAFIL CITRATE
  20. FOSRENOL [Concomitant]
     Active Substance: LANTHANUM CARBONATE
  21. LASIX [Concomitant]
     Active Substance: FUROSEMIDE
  22. TRIAMCINOLONE [Concomitant]
     Active Substance: TRIAMCINOLONE
  23. CINACALCET. [Concomitant]
     Active Substance: CINACALCET
  24. CIPROFLOXACIN. [Concomitant]
     Active Substance: CIPROFLOXACIN
  25. TRUVADA [Suspect]
     Active Substance: EMTRICITABINE\TENOFOVIR DISOPROXIL FUMARATE
     Indication: HIV INFECTION
     Dosage: UNK
     Route: 048
     Dates: start: 20101117, end: 201110
  26. CALCIUM ACETATE. [Concomitant]
     Active Substance: CALCIUM ACETATE
  27. VITAMIN D [VITAMIN D NOS] [Concomitant]
     Active Substance: VITAMIN D NOS
  28. EPZICOM [Concomitant]
     Active Substance: ABACAVIR SULFATE\LAMIVUDINE
  29. ISENTRESS [Concomitant]
     Active Substance: RALTEGRAVIR POTASSIUM
  30. LANSOPRAZOLE. [Concomitant]
     Active Substance: LANSOPRAZOLE
  31. PREZISTA [Concomitant]
     Active Substance: DARUNAVIR ETHANOLATE
  32. VALSARTAN. [Concomitant]
     Active Substance: VALSARTAN
  33. CLONIDINE. [Concomitant]
     Active Substance: CLONIDINE
  34. HYDROMET [HYDROCHLOROTHIAZIDE;METHYLDOPA] [Concomitant]
  35. BACTRIM DS [Concomitant]
     Active Substance: SULFAMETHOXAZOLE\TRIMETHOPRIM
  36. NORVIR [Concomitant]
     Active Substance: RITONAVIR
  37. SODIUM BICARBONATE. [Concomitant]
     Active Substance: SODIUM BICARBONATE
  38. LOSARTAN. [Concomitant]
     Active Substance: LOSARTAN
  39. ZOLPIDEM [Concomitant]
     Active Substance: ZOLPIDEM TARTRATE
  40. CEPHALEXIN [CEFALEXIN] [Concomitant]
     Active Substance: CEPHALEXIN
  41. MOXIFLOXACIN. [Concomitant]
     Active Substance: MOXIFLOXACIN
  42. BETAMETHASONE. [Concomitant]
     Active Substance: BETAMETHASONE
  43. AMOXICILLIN. [Concomitant]
     Active Substance: AMOXICILLIN
  44. KALETRA [Concomitant]
     Active Substance: LOPINAVIR\RITONAVIR
  45. IRBESARTAN. [Concomitant]
     Active Substance: IRBESARTAN
  46. VENTOLINE [SALBUTAMOL] [Concomitant]
     Active Substance: ALBUTEROL SULFATE
  47. TORSEMIDE. [Concomitant]
     Active Substance: TORSEMIDE
  48. NASONEX [Concomitant]
     Active Substance: MOMETASONE FUROATE

REACTIONS (18)
  - Bone loss [Not Recovered/Not Resolved]
  - Anaemia of chronic disease [Unknown]
  - Depression [Not Recovered/Not Resolved]
  - Proteinuria [Unknown]
  - Pain [Not Recovered/Not Resolved]
  - Bone density decreased [Unknown]
  - Gait disturbance [Not Recovered/Not Resolved]
  - Pyrexia [Unknown]
  - Asthenia [Not Recovered/Not Resolved]
  - Osteonecrosis [Unknown]
  - Acute kidney injury [Unknown]
  - End stage renal disease [Not Recovered/Not Resolved]
  - Anxiety [Not Recovered/Not Resolved]
  - Fatigue [Not Recovered/Not Resolved]
  - Renal failure [Unknown]
  - Chronic kidney disease [Unknown]
  - Tooth loss [Not Recovered/Not Resolved]
  - Emotional distress [Not Recovered/Not Resolved]

NARRATIVE: CASE EVENT DATE: 20170127
